FAERS Safety Report 8140759-3 (Version None)
Quarter: 2012Q1

REPORT INFORMATION
  Report Type: 
  Country: None (occurrence: None)
  Receive Date: 20120216
  Receipt Date: 20120123
  Transmission Date: 20120608
  Serious: No
  Sender: FDA-Public Use
  Company Number: US-ROXANE LABORATORIES, INC.-2012-RO-00548RO

PATIENT
  Sex: Male

DRUGS (3)
  1. LEVETIRACETAM [Suspect]
     Indication: EPILEPSY
     Dosage: 5 ML
     Route: 048
     Dates: start: 20111226, end: 20120122
  2. LEVETIRACETAM [Suspect]
     Dosage: 10 ML
     Route: 048
     Dates: end: 20120122
  3. TRILEPTAL [Concomitant]

REACTIONS (1)
  - RASH GENERALISED [None]
